FAERS Safety Report 5003403-X (Version None)
Quarter: 2006Q2

REPORT INFORMATION
  Report Type: 
  Country: None (occurrence: None)
  Receive Date: 20060511
  Receipt Date: 20060504
  Transmission Date: 20061013
  Serious: Yes (Hospitalization, Other)
  Sender: FDA-Public Use
  Company Number: 2005BI019024

PATIENT
  Age: 8 Month
  Sex: Male
  Weight: 11.8 kg

DRUGS (2)
  1. AVONEX [Suspect]
     Indication: MULTIPLE SCLEROSIS
     Dosage: 30 UG QW TRPL
     Route: 064
     Dates: start: 20010130, end: 20030801
  2. AVONEX [Suspect]
     Indication: MULTIPLE SCLEROSIS
     Dosage: 30 UG QW IM
     Route: 030
     Dates: start: 20040513

REACTIONS (4)
  - CARDIAC ARREST [None]
  - CONGESTIVE CARDIOMYOPATHY [None]
  - CORONARY ARTERY OCCLUSION [None]
  - DRUG EXPOSURE DURING PREGNANCY [None]
